FAERS Safety Report 12680701 (Version 1)
Quarter: 2016Q3

REPORT INFORMATION
  Report Type: Spontaneous
  Country: US (occurrence: US)
  Receive Date: 20160824
  Receipt Date: 20160824
  Transmission Date: 20161109
  Serious: No
  Sender: FDA-Public Use
  Company Number: US-FRI-1000080017

PATIENT
  Sex: Female

DRUGS (5)
  1. LEXAPRO [Suspect]
     Active Substance: ESCITALOPRAM OXALATE
     Indication: NERVOUSNESS
     Dates: start: 201308
  2. LEXAPRO [Suspect]
     Active Substance: ESCITALOPRAM OXALATE
     Indication: ANXIETY
  3. ABILIFY [Suspect]
     Active Substance: ARIPIPRAZOLE
     Indication: ANXIETY
  4. ATIVAN [Suspect]
     Active Substance: LORAZEPAM
     Dates: start: 201308
  5. ABILIFY [Suspect]
     Active Substance: ARIPIPRAZOLE
     Indication: NERVOUSNESS
     Dates: start: 201308

REACTIONS (2)
  - Off label use [Unknown]
  - Myalgia [Unknown]
